FAERS Safety Report 24081991 (Version 1)
Quarter: 2024Q3

REPORT INFORMATION
  Report Type: Spontaneous
  Country: US (occurrence: US)
  Receive Date: 20240712
  Receipt Date: 20240712
  Transmission Date: 20241016
  Serious: Yes (Other)
  Sender: Haleon PLC
  Company Number: US-HALEON-2182016

PATIENT

DRUGS (2)
  1. ROBITUSSIN (GUAIFENESIN) [Suspect]
     Active Substance: GUAIFENESIN
     Indication: Product used for unknown indication
  2. ROBITUSSIN SEVERE MULTI-SYMPTOM COUGH COLD FLU NIGHTTIME [Suspect]
     Active Substance: ACETAMINOPHEN\DIPHENHYDRAMINE HYDROCHLORIDE\PHENYLEPHRINE HYDROCHLORIDE
     Indication: Product used for unknown indication

REACTIONS (5)
  - Pneumonitis [Unknown]
  - Illness [Unknown]
  - Product complaint [Unknown]
  - Dyspnoea [Unknown]
  - Condition aggravated [Unknown]
